FAERS Safety Report 7592016-1 (Version None)
Quarter: 2011Q2

REPORT INFORMATION
  Report Type: 
  Country: None (occurrence: None)
  Receive Date: 20110628
  Receipt Date: 20110622
  Transmission Date: 20111010
  Serious: Yes (Hospitalization)
  Sender: FDA-Public Use
  Company Number: 2011SP019168

PATIENT
  Age: 64 Year
  Sex: Female
  Weight: 67 kg

DRUGS (6)
  1. DIOVAN [Concomitant]
  2. LANSOPRAZOLE [Concomitant]
  3. REBETOL [Suspect]
     Indication: HEPATITIS C
     Dosage: PO
     Route: 048
  4. URSO 250 [Concomitant]
  5. PEG-INTRON [Suspect]
     Indication: HEPATITIS C
     Dosage: 70 MCG; QW; SC
     Route: 058
     Dates: end: 20100908
  6. AMLODIPINE [Concomitant]

REACTIONS (8)
  - DIZZINESS [None]
  - GAIT DISTURBANCE [None]
  - DEAFNESS UNILATERAL [None]
  - NAUSEA [None]
  - INNER EAR DISORDER [None]
  - TINNITUS [None]
  - DEAFNESS NEUROSENSORY [None]
  - NYSTAGMUS [None]
